FAERS Safety Report 16943194 (Version 1)
Quarter: 2019Q4

REPORT INFORMATION
  Report Type: Spontaneous
  Country: US (occurrence: US)
  Receive Date: 20191021
  Receipt Date: 20191021
  Transmission Date: 20200122
  Serious: Yes (Hospitalization)
  Sender: FDA-Public Use
  Company Number: US-TEVA-2019-US-1125496

PATIENT
  Age: 69 Year
  Sex: Male

DRUGS (1)
  1. MONTELUKAST [Suspect]
     Active Substance: MONTELUKAST SODIUM
     Dosage: STOPPED THE TREATMENT AFTER 2 WEEKS AS HE FELT NO RELIEF
     Route: 065

REACTIONS (1)
  - Eosinophilic pneumonia chronic [Recovering/Resolving]
